FAERS Safety Report 4720668-X (Version None)
Quarter: 2005Q3

REPORT INFORMATION
  Report Type: 
  Country: None (occurrence: None)
  Receive Date: 20050721
  Receipt Date: 20050714
  Transmission Date: 20060218
  Serious: Yes (Other)
  Sender: FDA-Public Use
  Company Number: 200515805US

PATIENT
  Age: 63 Year
  Sex: Female

DRUGS (5)
  1. LANTUS [Suspect]
     Indication: DIABETES MELLITUS NON-INSULIN-DEPENDENT
     Dosage: DOSE UNIT: UNITS
  2. METFORMIN [Concomitant]
     Dosage: DOSE: UNK
  3. GLIPIZIDE [Concomitant]
     Dosage: DOSE: UNK
  4. LOVASTATIN [Concomitant]
     Dosage: DOSE: UNK
  5. METOCLOPRAMIDE [Concomitant]
     Dosage: DOSE: UNK

REACTIONS (3)
  - BLOOD GLUCOSE DECREASED [None]
  - DIARRHOEA [None]
  - VOMITING [None]
